FAERS Safety Report 8828454 (Version 1)
Quarter: 2012Q4

REPORT INFORMATION
  Report Type: 
  Country: CH (occurrence: CH)
  Receive Date: 20121005
  Receipt Date: 20121005
  Transmission Date: 20130627
  Serious: Yes (Hospitalization)
  Sender: FDA-Public Use
  Company Number: CH-ABBOTT-12P-151-0988666-00

PATIENT
  Age: 73 Year
  Sex: Male

DRUGS (28)
  1. KLACID [Suspect]
     Indication: HELICOBACTER INFECTION
     Route: 048
     Dates: start: 20120806, end: 20120815
  2. PANTOZOL [Suspect]
     Indication: HELICOBACTER INFECTION
     Route: 048
     Dates: start: 201207, end: 20120815
  3. PANTOZOL [Suspect]
     Route: 048
     Dates: start: 20120815
  4. PANTOZOL [Suspect]
     Route: 048
     Dates: start: 201201, end: 201203
  5. AUGMENTIN [Suspect]
     Indication: HELICOBACTER INFECTION
     Route: 048
     Dates: start: 20120806, end: 20120815
  6. AUGMENTIN [Suspect]
     Dates: start: 2010, end: 2010
  7. LEUKERAN [Concomitant]
     Indication: PRODUCT USED FOR UNKNOWN INDICATION
     Route: 048
     Dates: start: 201202, end: 20120724
  8. SORTIS [Concomitant]
     Indication: PRODUCT USED FOR UNKNOWN INDICATION
     Route: 048
     Dates: end: 20120805
  9. CIPROXINE [Concomitant]
     Indication: PRODUCT USED FOR UNKNOWN INDICATION
     Route: 048
     Dates: start: 20120803, end: 20120805
  10. ZOLPIDEM [Concomitant]
     Indication: PRODUCT USED FOR UNKNOWN INDICATION
     Dosage: 5 mg total dose
     Route: 048
     Dates: start: 20120805, end: 20120805
  11. ASPIRIN [Concomitant]
     Indication: PRODUCT USED FOR UNKNOWN INDICATION
     Route: 048
  12. DUODART [Concomitant]
     Indication: PRODUCT USED FOR UNKNOWN INDICATION
     Route: 048
     Dates: start: 201207
  13. ALLOPURINOL [Concomitant]
     Indication: PRODUCT USED FOR UNKNOWN INDICATION
     Route: 048
  14. CORDARONE [Concomitant]
     Indication: PRODUCT USED FOR UNKNOWN INDICATION
     Route: 048
  15. CYMBALTA [Concomitant]
     Indication: PRODUCT USED FOR UNKNOWN INDICATION
     Route: 048
  16. EUTHYROX [Concomitant]
     Indication: PRODUCT USED FOR UNKNOWN INDICATION
     Route: 048
  17. PERINDOPRIL [Concomitant]
     Indication: PRODUCT USED FOR UNKNOWN INDICATION
     Route: 048
     Dates: start: 20120807, end: 20120825
  18. TORASEMID [Concomitant]
     Indication: PRODUCT USED FOR UNKNOWN INDICATION
     Route: 048
  19. XENALON [Concomitant]
     Indication: PRODUCT USED FOR UNKNOWN INDICATION
     Route: 048
  20. BELOC ZOK [Concomitant]
     Indication: PRODUCT USED FOR UNKNOWN INDICATION
     Route: 048
  21. PREDNISONE [Concomitant]
     Indication: PRODUCT USED FOR UNKNOWN INDICATION
     Dosage: alternating 5 and 7.5 mg eod
     Route: 048
     Dates: end: 20120802
  22. PREDNISONE [Concomitant]
     Route: 048
     Dates: start: 20120803, end: 20120807
  23. PREDNISONE [Concomitant]
     Dosage: alternating 5 and 7.5 mg eod
     Route: 048
     Dates: start: 20120808
  24. BECOZYM-F [Concomitant]
     Indication: PRODUCT USED FOR UNKNOWN INDICATION
     Route: 048
  25. VITAMINE B1 [Concomitant]
     Indication: PRODUCT USED FOR UNKNOWN INDICATION
     Route: 048
  26. CALCIMAGON-D3 [Concomitant]
     Indication: PRODUCT USED FOR UNKNOWN INDICATION
     Route: 048
  27. LANTUS [Concomitant]
     Indication: PRODUCT USED FOR UNKNOWN INDICATION
     Route: 048
  28. NOVORAPID [Concomitant]
     Indication: PRODUCT USED FOR UNKNOWN INDICATION
     Dosage: as prescribed, before meals
     Route: 058

REACTIONS (4)
  - Hepatic infiltration eosinophilic [Unknown]
  - Hepatitis cholestatic [Not Recovered/Not Resolved]
  - Jaundice cholestatic [Not Recovered/Not Resolved]
  - Adverse drug reaction [Unknown]
